FAERS Safety Report 5307804-1 (Version None)
Quarter: 2007Q1

REPORT INFORMATION
  Report Type: 
  Country: None (occurrence: None)
  Receive Date: 20070201
  Receipt Date: 20061205
  Transmission Date: 20070707
  Serious: No
  Sender: FDA-Public Use
  Company Number: 2006PV026441

PATIENT
  Age: 40 Year
  Sex: Female
  Weight: 94.3482 kg

DRUGS (6)
  1. BYETTA [Suspect]
     Dosage: SEE IMAGE
     Route: 058
     Dates: start: 20061101, end: 20061101
  2. BYETTA [Suspect]
     Dosage: SEE IMAGE
     Route: 058
     Dates: start: 20061101, end: 20061101
  3. BYETTA [Suspect]
     Dosage: SEE IMAGE
     Route: 058
     Dates: start: 20061118, end: 20061101
  4. BYETTA [Suspect]
     Dosage: SEE IMAGE
     Route: 058
     Dates: start: 20061201
  5. LEVEMIR [Concomitant]
  6. AVANDAMET [Concomitant]

REACTIONS (6)
  - ANOREXIA [None]
  - BODY TEMPERATURE INCREASED [None]
  - GASTROENTERITIS VIRAL [None]
  - INJECTION SITE URTICARIA [None]
  - NAUSEA [None]
  - VIRAL DIARRHOEA [None]
